FAERS Safety Report 4385403-6 (Version None)
Quarter: 2004Q2

REPORT INFORMATION
  Report Type: 
  Country: None (occurrence: None)
  Receive Date: 20040622
  Receipt Date: 20040614
  Transmission Date: 20050107
  Serious: Yes (Hospitalization)
  Sender: FDA-Public Use
  Company Number: STA-AE-04-MTX-263

PATIENT
  Age: 26 Year
  Sex: Female

DRUGS (3)
  1. METHOTREXATE [Suspect]
     Indication: JUVENILE ARTHRITIS
     Dosage: 10 MG 1X PER 1 WK, ORAL
     Route: 048
     Dates: start: 20040301, end: 20040509
  2. ESOMEPRAZOLE (ESOMEPRAZOLE) [Concomitant]
  3. PREDNISONE TAB [Concomitant]

REACTIONS (9)
  - ABDOMINAL PAIN [None]
  - CHEST PAIN [None]
  - DIARRHOEA [None]
  - ESCHERICHIA INFECTION [None]
  - HEADACHE [None]
  - HYPOKALAEMIA [None]
  - NAUSEA [None]
  - PYELONEPHRITIS [None]
  - VOMITING [None]
